FAERS Safety Report 6025438-0 (Version None)
Quarter: 2008Q4

REPORT INFORMATION
  Report Type: 
  Country: None (occurrence: None)
  Receive Date: 20081222
  Receipt Date: 20081209
  Transmission Date: 20090506
  Serious: Yes (Hospitalization)
  Sender: FDA-Public Use
  Company Number: AECAN200800219

PATIENT
  Age: 71 Year
  Sex: Female
  Weight: 68.95 kg

DRUGS (9)
  1. IMMUNE GLOBULIN INTRAVENOUS (HUMAN) [Suspect]
     Indication: STIFF-MAN SYNDROME
     Dosage: 25 GM; QD; IV
     Route: 042
     Dates: start: 20060301
  2. IMMUNE GLOBULIN INTRAVENOUS (HUMAN) [Suspect]
  3. IMMUNE GLOBULIN INTRAVENOUS (HUMAN) [Suspect]
     Indication: STIFF-MAN SYNDROME
     Dosage: 10 GM; QD; IV
     Route: 042
     Dates: start: 20060301
  4. HYDROCHLOROTHIAZIDE [Concomitant]
  5. BACLOFEN [Concomitant]
  6. CLOBAZAM [Concomitant]
  7. ATIVAN [Concomitant]
  8. DIPHENHYDRAMINE HCL [Concomitant]
  9. ALTACE [Concomitant]

REACTIONS (8)
  - ASPARTATE AMINOTRANSFERASE INCREASED [None]
  - BLOOD LACTATE DEHYDROGENASE INCREASED [None]
  - BLOOD PRESSURE FLUCTUATION [None]
  - BLOOD PRESSURE INCREASED [None]
  - MENINGITIS ASEPTIC [None]
  - NAUSEA [None]
  - PHOTOPHOBIA [None]
  - VOMITING [None]
